FAERS Safety Report 9311036 (Version 1)
Quarter: 2013Q2

REPORT INFORMATION
  Report Type: Spontaneous
  Country: US (occurrence: None)
  Receive Date: 20130523
  Receipt Date: 20130523
  Transmission Date: 20140414
  Serious: Yes (Other)
  Sender: FDA-Public Use
  Company Number: None

PATIENT
  Age: 41 Year
  Sex: Male
  Weight: 99.79 kg

DRUGS (1)
  1. AGELESS FOUNDATION 23 [Suspect]
     Dosage: 2 SOFTGELS

REACTIONS (2)
  - Erectile dysfunction [None]
  - Condition aggravated [None]
